FAERS Safety Report 9734109 (Version 2)
Quarter: 2013Q4

REPORT INFORMATION
  Report Type: Spontaneous
  Country: US (occurrence: US)
  Receive Date: 20131205
  Receipt Date: 20131205
  Transmission Date: 20140711
  Serious: Yes (Disabling)
  Sender: FDA-Public Use
  Company Number: US-TAKEDA-2013TUS002799

PATIENT
  Sex: 0

DRUGS (2)
  1. DEXILANT [Suspect]
     Indication: ULCER
     Dosage: 60 MG
     Dates: start: 201307
  2. TOPAMAX [Concomitant]
     Dosage: 25 MG

REACTIONS (1)
  - Maculopathy [Not Recovered/Not Resolved]
